FAERS Safety Report 9788067 (Version 3)
Quarter: 2014Q1

REPORT INFORMATION
  Report Type: Report from Study
  Country: DE (occurrence: DE)
  Receive Date: 20131230
  Receipt Date: 20140321
  Transmission Date: 20141002
  Serious: Yes (Hospitalization)
  Sender: FDA-Public Use
  Company Number: DE-ABBVIE-13P-062-1181716-00

PATIENT
  Age: 69 Year
  Sex: Female
  Weight: 84 kg

DRUGS (14)
  1. HUMIRA [Suspect]
     Indication: PSORIATIC ARTHROPATHY
     Route: 058
     Dates: start: 20110127, end: 20131001
  2. HUMIRA [Suspect]
     Dosage: THERAPY RESTART
     Route: 058
     Dates: start: 201401
  3. ANTIHYPERTENSIVE DRUG [Concomitant]
     Indication: PRODUCT USED FOR UNKNOWN INDICATION
  4. ASS [Concomitant]
     Indication: PRODUCT USED FOR UNKNOWN INDICATION
     Route: 048
  5. SIMVASTATIN [Concomitant]
     Indication: PRODUCT USED FOR UNKNOWN INDICATION
  6. CARVEDILOL [Concomitant]
     Indication: PRODUCT USED FOR UNKNOWN INDICATION
  7. PANTOZOL [Concomitant]
     Indication: PRODUCT USED FOR UNKNOWN INDICATION
  8. EXFORGE HCT [Concomitant]
     Indication: PRODUCT USED FOR UNKNOWN INDICATION
     Route: 048
  9. VELMETIA [Concomitant]
     Indication: PRODUCT USED FOR UNKNOWN INDICATION
     Dosage: 50/850MG
     Route: 048
  10. INSULIN [Concomitant]
     Indication: TYPE 2 DIABETES MELLITUS
     Route: 058
  11. AMLODIPIN [Concomitant]
     Indication: PRODUCT USED FOR UNKNOWN INDICATION
  12. PROCORALAN [Concomitant]
     Indication: PRODUCT USED FOR UNKNOWN INDICATION
  13. STAURODORM [Concomitant]
     Indication: PRODUCT USED FOR UNKNOWN INDICATION
  14. FALITHROM [Concomitant]
     Indication: PRODUCT USED FOR UNKNOWN INDICATION
     Dosage: DOSE ACCORDING BLOOD VALUE, INTAKE PLANNED UNTIL END OF FEB 2014

REACTIONS (5)
  - Blood pressure abnormal [Unknown]
  - Deep vein thrombosis [Recovered/Resolved]
  - Hypertensive crisis [Recovered/Resolved]
  - Injection site haematoma [Unknown]
  - Inappropriate schedule of drug administration [Unknown]
